FAERS Safety Report 16912956 (Version 8)
Quarter: 2019Q4

REPORT INFORMATION
  Report Type: Report from Study
  Country: CA (occurrence: CA)
  Receive Date: 20191014
  Receipt Date: 20191128
  Transmission Date: 20200122
  Serious: Yes (Hospitalization)
  Sender: FDA-Public Use
  Company Number: CA-BEH-2019108073

PATIENT
  Age: 53 Year
  Sex: Male

DRUGS (3)
  1. HIZENTRA [Suspect]
     Active Substance: HUMAN IMMUNOGLOBULIN G
     Dosage: 8 GRAM, TOT
     Route: 058
  2. HIZENTRA [Suspect]
     Active Substance: HUMAN IMMUNOGLOBULIN G
     Dosage: 8 GRAM, TOT
     Route: 058
     Dates: start: 20191024, end: 20191024
  3. HIZENTRA [Suspect]
     Active Substance: HUMAN IMMUNOGLOBULIN G
     Indication: SECONDARY IMMUNODEFICIENCY
     Dosage: 8 GRAM, QW
     Route: 058
     Dates: start: 20191010

REACTIONS (15)
  - Injection site oedema [Unknown]
  - Fatigue [Recovered/Resolved]
  - Epistaxis [Recovered/Resolved]
  - Blood pressure increased [Unknown]
  - Injection site swelling [Unknown]
  - Product dose omission [Unknown]
  - Injection site erythema [Unknown]
  - Injection site mass [Unknown]
  - Injection site erythema [Unknown]
  - No adverse event [Unknown]
  - Injection site erythema [Unknown]
  - Fatigue [Recovered/Resolved]
  - Injection site oedema [Unknown]
  - Patient dissatisfaction with treatment [Unknown]
  - Injection site swelling [Unknown]

NARRATIVE: CASE EVENT DATE: 201910
